FAERS Safety Report 20389655 (Version 2)
Quarter: 2022Q3

REPORT INFORMATION
  Report Type: Spontaneous
  Country: NL (occurrence: NL)
  Receive Date: 20220128
  Receipt Date: 20220726
  Transmission Date: 20221026
  Serious: Yes (Other)
  Sender: FDA-Public Use
  Company Number: NL-CELLTRION HEALTHCARE HUNGARY KFT-2022NL000305

PATIENT
  Age: 59 Year
  Sex: Male

DRUGS (7)
  1. DOCETAXEL [Suspect]
     Active Substance: DOCETAXEL
     Indication: HER2 positive salivary gland cancer
     Dosage: 225 MILLIGRAM/KILOGRAM, EVERY WEEK (6 DOSAGES (75MG/KG, EVERY 3 WEEKS))
     Route: 065
  2. TRASTUZUMAB [Suspect]
     Active Substance: TRASTUZUMAB
     Indication: HER2 positive salivary gland cancer
     Dosage: 1800 MILLIGRAM, EVERY WEEK (600MG, EVERY 3 WEEKS)
     Route: 058
  3. TRASTUZUMAB [Suspect]
     Active Substance: TRASTUZUMAB
     Dosage: 24 MILLIGRAM/KILOGRAM, EVERY WEEK (8 MG/KG, EVERY 3 WEEKS )
     Route: 042
  4. TRASTUZUMAB [Suspect]
     Active Substance: TRASTUZUMAB
     Dosage: 18 MILLIGRAM/KILOGRAM, EVERY WEEK (6 MG/KG, EVERY 3 WEEKS (SUBSEQUENT DOSAGES) )
     Route: 042
  5. PERTUZUMAB [Suspect]
     Active Substance: PERTUZUMAB
     Indication: HER2 positive salivary gland cancer
     Dosage: 2520 MILLIGRAM, EVERY WEEK (840 MG, EVERY 3 WEEKS)
     Route: 042
  6. PERTUZUMAB [Suspect]
     Active Substance: PERTUZUMAB
     Dosage: 1260 MILLIGRAM, EVERY WEEK (420 MG, EVERY 3 WEEKS (SUBSEQUENT DOSAGES) )
     Route: 042
  7. ADO-TRASTUZUMAB EMTANSINE [Suspect]
     Active Substance: ADO-TRASTUZUMAB EMTANSINE
     Indication: Product used for unknown indication
     Dosage: UNK
     Route: 065

REACTIONS (4)
  - Therapy partial responder [Unknown]
  - Salivary gland cancer [Unknown]
  - Disease progression [Unknown]
  - Off label use [Unknown]
